FAERS Safety Report 5670700-4 (Version None)
Quarter: 2008Q2

REPORT INFORMATION
  Report Type: 
  Country: None (occurrence: None)
  Receive Date: 20080305
  Receipt Date: 20070112
  Transmission Date: 20081010
  Serious: Yes (Hospitalization)
  Sender: FDA-Public Use
  Company Number: BDI-008992

PATIENT
  Age: 31 Year
  Sex: Female
  Weight: 63.6 kg

DRUGS (1)
  1. ISOVUE-300 [Suspect]
     Indication: COMPUTERISED TOMOGRAM
     Dosage: 95ML ONCE INTRAVENOUS
     Route: 042
     Dates: start: 20061205, end: 20061205

REACTIONS (1)
  - HYPERSENSITIVITY [None]
